FAERS Safety Report 6844543-X (Version None)
Quarter: 2010Q3

REPORT INFORMATION
  Report Type: 
  Country: None (occurrence: None)
  Receive Date: 20100715
  Receipt Date: 20100624
  Transmission Date: 20110219
  Serious: Yes (Other)
  Sender: FDA-Public Use
  Company Number: PHHY2010US29514

PATIENT
  Sex: Female

DRUGS (7)
  1. DIOVAN [Suspect]
     Indication: HYPERTENSION
     Dosage: UNK
     Dates: start: 20071001
  2. DIOVAN [Suspect]
     Dosage: 160 MG
     Route: 048
     Dates: start: 20080701, end: 20081201
  3. EXFORGE [Suspect]
     Indication: HYPERTENSION
     Dosage: UNK
     Dates: start: 20080701
  4. AMLODIPINE [Concomitant]
  5. ISOSORBIDE MONONITRATE [Concomitant]
  6. ZOCOR [Concomitant]
  7. PREVACID [Concomitant]

REACTIONS (7)
  - CHEST PAIN [None]
  - CIRCULATORY COLLAPSE [None]
  - DIZZINESS [None]
  - DYSPNOEA [None]
  - MALAISE [None]
  - SYNCOPE [None]
  - WITHDRAWAL HYPERTENSION [None]
